FAERS Safety Report 6141453-0 (Version None)
Quarter: 2009Q2

REPORT INFORMATION
  Report Type: 
  Country: None (occurrence: None)
  Receive Date: 20090402
  Receipt Date: 20090331
  Transmission Date: 20091009
  Serious: Yes (Other)
  Sender: FDA-Public Use
  Company Number: US-RB-013163-09

PATIENT
  Sex: Female

DRUGS (5)
  1. SUBUTEX [Suspect]
     Route: 060
     Dates: start: 20090115
  2. SUBOXONE [Suspect]
     Route: 060
     Dates: start: 20080930, end: 20090114
  3. TRAZODONE [Concomitant]
     Indication: INSOMNIA
     Route: 048
  4. KLONOPIN [Concomitant]
     Indication: ANXIETY
     Route: 048
  5. PAXIL [Concomitant]
     Indication: DEPRESSION
     Route: 048

REACTIONS (2)
  - DRUG EXPOSURE DURING PREGNANCY [None]
  - SELECTIVE ABORTION [None]
